FAERS Safety Report 7957834-6 (Version None)
Quarter: 2011Q4

REPORT INFORMATION
  Report Type: 
  Country: None (occurrence: None)
  Receive Date: 20111205
  Receipt Date: 20111128
  Transmission Date: 20120403
  Serious: Yes (Hospitalization)
  Sender: FDA-Public Use
  Company Number: US-ASTRAZENECA-2011SE72157

PATIENT
  Age: 45 Year
  Sex: Male

DRUGS (4)
  1. CITALOPRAM [Concomitant]
  2. SEROQUEL XR [Suspect]
     Indication: MAJOR DEPRESSION
     Route: 048
  3. WELLBUTRIN [Concomitant]
  4. SEROQUEL XR [Suspect]
     Indication: ANXIETY
     Route: 048

REACTIONS (1)
  - ROAD TRAFFIC ACCIDENT [None]
